FAERS Safety Report 8916121 (Version 4)
Quarter: 2013Q2

REPORT INFORMATION
  Report Type: Spontaneous
  Country: IE (occurrence: IE)
  Receive Date: 20121120
  Receipt Date: 20130403
  Transmission Date: 20140414
  Serious: Yes (Death)
  Sender: FDA-Public Use
  Company Number: PHFR2012IE005976

PATIENT
  Age: 49 Year
  Sex: Male

DRUGS (2)
  1. CLOZARIL [Suspect]
     Indication: SCHIZOPHRENIA
     Dosage: 350 MG, (50 MG MANE AND 300 MG NOCTE)
     Route: 048
     Dates: start: 20120823
  2. CITALOPRAM [Concomitant]
     Indication: MOOD SWINGS
     Dosage: 30 MG, MANE

REACTIONS (3)
  - Completed suicide [Fatal]
  - White blood cell count increased [Unknown]
  - Neutrophil count increased [Unknown]
